FAERS Safety Report 9049480 (Version 2)
Quarter: 2013Q1

REPORT INFORMATION
  Report Type: Spontaneous
  Country: JP (occurrence: JP)
  Receive Date: 20130205
  Receipt Date: 20130213
  Transmission Date: 20140127
  Serious: Yes (Hospitalization)
  Sender: FDA-Public Use
  Company Number: JP-GLAXOSMITHKLINE-B0864714A

PATIENT
  Age: 4 Decade
  Sex: Female

DRUGS (1)
  1. LAMICTAL [Suspect]
     Indication: BIPOLAR DISORDER
     Route: 048
     Dates: end: 201209

REACTIONS (3)
  - Pustular psoriasis [Recovered/Resolved]
  - Rash [Unknown]
  - Paraesthesia [Unknown]
